FAERS Safety Report 24936862 (Version 2)
Quarter: 2025Q2

REPORT INFORMATION
  Report Type: Spontaneous
  Country: US (occurrence: US)
  Receive Date: 20250206
  Receipt Date: 20250623
  Transmission Date: 20250716
  Serious: No
  Sender: GLAND PHARMA LTD
  Company Number: US-GLANDPHARMA-US-2025GLNSPO00170

PATIENT
  Sex: Male

DRUGS (1)
  1. CISPLATIN [Suspect]
     Active Substance: CISPLATIN
     Indication: Chemotherapy
     Route: 065

REACTIONS (3)
  - Vomiting [Unknown]
  - Nausea [Unknown]
  - Hypoacusis [Unknown]
